FAERS Safety Report 9409608 (Version 2)
Quarter: 2013Q3

REPORT INFORMATION
  Report Type: Spontaneous
  Country: GB (occurrence: GB)
  Receive Date: 20130719
  Receipt Date: 20130730
  Transmission Date: 20140515
  Serious: Yes (Other)
  Sender: FDA-Public Use
  Company Number: GB-VERTEX PHARMACEUTICALS INC-2013-008085

PATIENT
  Sex: 0

DRUGS (3)
  1. INCIVO [Suspect]
     Indication: HEPATITIS C
     Dosage: 1125 MG, BID
     Route: 048
     Dates: start: 20130521, end: 20130716
  2. INTERFERON ALFA [Suspect]
     Indication: HEPATITIS C
     Dosage: 135 ?G, QW
     Route: 065
     Dates: start: 20130521
  3. RIBAVIRIN [Suspect]
     Indication: HEPATITIS C
     Dosage: 200 MG, BID
     Dates: start: 20130521

REACTIONS (2)
  - Blood pressure increased [Unknown]
  - Renal impairment [Not Recovered/Not Resolved]
